FAERS Safety Report 7280063-9 (Version None)
Quarter: 2011Q1

REPORT INFORMATION
  Report Type: 
  Country: None (occurrence: None)
  Receive Date: 20110126
  Receipt Date: 20110110
  Transmission Date: 20110831
  Serious: Yes (Death, Hospitalization)
  Sender: FDA-Public Use
  Company Number: UTC-004200

PATIENT
  Age: 62 Year
  Sex: Female
  Weight: 72.7 kg

DRUGS (2)
  1. REVATIO [Concomitant]
  2. REMODULIN [Suspect]
     Indication: PULMONARY ARTERIAL HYPERTENSION
     Dosage: 118.08 UG/KG (0.082 UG/KG,1 IN 1 MIN),SUBCUTANEOUS
     Route: 058
     Dates: start: 20090423, end: 20110110

REACTIONS (1)
  - MYOCARDIAL INFARCTION [None]
